FAERS Safety Report 6037564-0 (Version None)
Quarter: 2009Q1

REPORT INFORMATION
  Report Type: 
  Country: None (occurrence: None)
  Receive Date: 20090113
  Receipt Date: 20090106
  Transmission Date: 20090719
  Serious: Yes (Death, Hospitalization)
  Sender: FDA-Public Use
  Company Number: WAES 0901USA00238

PATIENT
  Age: 53 Year
  Sex: Male
  Weight: 36.2878 kg

DRUGS (4)
  1. DECADRON [Suspect]
     Dosage: 8 MG/QID; PO
     Route: 048
     Dates: start: 20080401, end: 20080523
  2. CAP SUNITINIB MALAGE UNK [Suspect]
     Indication: NEOPLASM MALIGNANT
     Dosage: 37.5 MG, DAILY, PO
     Route: 048
     Dates: start: 20080428, end: 20080523
  3. DILAUDID [Concomitant]
  4. OXYCODONE [Concomitant]

REACTIONS (19)
  - ACUTE RESPIRATORY DISTRESS SYNDROME [None]
  - BACTERIAL SEPSIS [None]
  - BLOOD CULTURE POSITIVE [None]
  - BLOOD GLUCOSE INCREASED [None]
  - BONE EROSION [None]
  - CULTURE URINE POSITIVE [None]
  - HAEMOGLOBIN DECREASED [None]
  - MENTAL STATUS CHANGES [None]
  - NECK PAIN [None]
  - NEUTROPENIA [None]
  - NEUTROPHIL COUNT DECREASED [None]
  - PLATELET COUNT DECREASED [None]
  - PLEURAL EFFUSION [None]
  - PNEUMONIA [None]
  - PULMONARY OEDEMA [None]
  - STAPHYLOCOCCAL INFECTION [None]
  - TUMOUR INVASION [None]
  - TUMOUR PAIN [None]
  - WHITE BLOOD CELL COUNT DECREASED [None]
